FAERS Safety Report 4914560-5 (Version None)
Quarter: 2006Q1

REPORT INFORMATION
  Report Type: 
  Country: None (occurrence: None)
  Receive Date: 20060216
  Receipt Date: 20051025
  Transmission Date: 20060701
  Serious: Yes (Hospitalization, Disabling)
  Sender: FDA-Public Use
  Company Number: US-MERCK-0510USA09017

PATIENT
  Age: 79 Year
  Sex: Male
  Weight: 77 kg

DRUGS (7)
  1. VIOXX [Suspect]
     Indication: OSTEOARTHRITIS
     Route: 048
     Dates: start: 20010901, end: 20040930
  2. PREVACID [Concomitant]
     Route: 065
  3. INDERAL [Concomitant]
     Indication: HYPERTENSION
     Route: 065
     Dates: start: 19950101, end: 20040101
  4. AVANDIA [Concomitant]
     Indication: DIABETES MELLITUS NON-INSULIN-DEPENDENT
     Route: 065
  5. LIPITOR [Concomitant]
     Indication: BLOOD CHOLESTEROL INCREASED
     Route: 065
     Dates: start: 19930101
  6. TYLENOL [Concomitant]
     Indication: PAIN
     Route: 065
     Dates: start: 19700101
  7. PLAVIX [Concomitant]
     Indication: SUPRAVENTRICULAR TACHYCARDIA
     Route: 065
     Dates: start: 20000101

REACTIONS (4)
  - APPENDIX DISORDER [None]
  - BACK PAIN [None]
  - DEPRESSION [None]
  - ISCHAEMIC STROKE [None]
